FAERS Safety Report 4945226-3 (Version None)
Quarter: 2006Q1

REPORT INFORMATION
  Report Type: 
  Country: None (occurrence: None)
  Receive Date: 20060117
  Receipt Date: 20051024
  Transmission Date: 20060701
  Serious: Yes (Hospitalization)
  Sender: FDA-Public Use
  Company Number: A03200503377

PATIENT
  Age: 53 Year
  Sex: Female
  Weight: 72.5755 kg

DRUGS (1)
  1. PLAVIX [Suspect]
     Indication: THROMBOSIS
     Dosage: 75 MG QD - ORAL
     Route: 048
     Dates: start: 20040101, end: 20040601

REACTIONS (1)
  - ULCER HAEMORRHAGE [None]
